FAERS Safety Report 14583798 (Version 1)
Quarter: 2018Q1

REPORT INFORMATION
  Report Type: Report from Study
  Country: US (occurrence: US)
  Receive Date: 20180228
  Receipt Date: 20180228
  Transmission Date: 20180509
  Serious: Yes (Other)
  Sender: FDA-Public Use
  Company Number: PHEH2018US006789

PATIENT
  Sex: Female

DRUGS (1)
  1. COSENTYX [Suspect]
     Active Substance: SECUKINUMAB
     Indication: PRODUCT USED FOR UNKNOWN INDICATION
     Dosage: 300 MG, QMO
     Route: 058

REACTIONS (7)
  - Drug ineffective [Unknown]
  - Suicidal ideation [Unknown]
  - Pain [Unknown]
  - Fibromyalgia [Unknown]
  - Inappropriate schedule of drug administration [Unknown]
  - Seizure [Unknown]
  - Depression [Unknown]
